FAERS Safety Report 6679159-1 (Version None)
Quarter: 2010Q2

REPORT INFORMATION
  Report Type: 
  Country: None (occurrence: None)
  Receive Date: 20100402
  Receipt Date: 20091105
  Transmission Date: 20101027
  Serious: Yes (Other)
  Sender: FDA-Public Use
  Company Number: 2009294460

PATIENT
  Age: 68 Year
  Sex: Male

DRUGS (6)
  1. ARGATROBAN [Suspect]
     Indication: HEPARIN-INDUCED THROMBOCYTOPENIA
     Dosage: 250 MG, INTRAVENOUS
     Route: 042
     Dates: start: 20091105
  2. LOPRESSOR [Concomitant]
  3. REGLAN [Concomitant]
  4. PROTONIX [Concomitant]
  5. AZITHROMYCIN [Concomitant]
  6. ASPIRIN [Concomitant]

REACTIONS (1)
  - INTERNATIONAL NORMALISED RATIO INCREASED [None]
